FAERS Safety Report 12462194 (Version 1)
Quarter: 2016Q2

REPORT INFORMATION
  Report Type: Spontaneous
  Country: US (occurrence: US)
  Receive Date: 20160613
  Receipt Date: 20160613
  Transmission Date: 20160815
  Serious: No
  Sender: FDA-Public Use
  Company Number: US-BAYER-2016-115089

PATIENT
  Age: 63 Year
  Sex: Female
  Weight: 53.52 kg

DRUGS (1)
  1. CLARITIN-D 12 HOUR [Suspect]
     Active Substance: LORATADINE\PSEUDOEPHEDRINE SULFATE
     Indication: SINUS CONGESTION
     Dosage: 1 DF, QD
     Route: 048
     Dates: start: 2012

REACTIONS (2)
  - Extra dose administered [None]
  - Product use issue [None]

NARRATIVE: CASE EVENT DATE: 20160610
